FAERS Safety Report 9470167 (Version 1)
Quarter: 2013Q3

REPORT INFORMATION
  Report Type: Spontaneous
  Country: US (occurrence: US)
  Receive Date: 20130822
  Receipt Date: 20130822
  Transmission Date: 20140515
  Serious: No
  Sender: FDA-Public Use
  Company Number: US-COVIDIEN/TYCO HEALTHCARE/MALLINCKRODT-T201303386

PATIENT
  Age: 25 Year
  Sex: Female

DRUGS (6)
  1. GABLOFEN [Suspect]
     Indication: MUSCLE SPASTICITY
     Dosage: 73 MCG/DAY
     Route: 037
  2. GABLOFEN [Suspect]
     Dosage: 78 MCG/DAY
     Route: 037
  3. GABLOFEN [Suspect]
     Dosage: 84 MCG/DAY
     Route: 037
  4. GABLOFEN [Suspect]
     Dosage: 89.76 MCG/DAY
     Route: 037
     Dates: start: 20130528
  5. BACLOFEN [Concomitant]
     Dosage: AS NEEDED
     Route: 048
  6. BACLOFEN [Concomitant]
     Dosage: THREE TIMES A DAY
     Route: 048

REACTIONS (5)
  - Mobility decreased [Unknown]
  - Muscle spasticity [Unknown]
  - Pruritus [Unknown]
  - Underdose [Unknown]
  - Drug effect decreased [Unknown]
